FAERS Safety Report 8483890-5 (Version None)
Quarter: 2012Q2

REPORT INFORMATION
  Report Type: 
  Country: None (occurrence: None)
  Receive Date: 20120627
  Receipt Date: 20120627
  Transmission Date: 20120825
  Serious: No
  Sender: FDA-Public Use
  Company Number: None

PATIENT
  Age: 72 Year
  Sex: Male

DRUGS (23)
  1. METOPROLOL [Concomitant]
  2. VICODIN [Concomitant]
  3. VITAMIN B COMPLEX CAP [Concomitant]
  4. ACYCLOVIR [Concomitant]
  5. FAMOTIDINE [Concomitant]
  6. TESTOSTERONE [Concomitant]
  7. VARDENAFIL HYDROCHLORIDE (LEVITRA) [Concomitant]
  8. FERROUS SULFATE TAB [Concomitant]
  9. FLAXSEED OIL [Concomitant]
  10. CITALOPRAM HYDROBROMIDE [Concomitant]
  11. M.V.I. [Concomitant]
  12. GLUCOSAMINE/CHONDROITIN [Concomitant]
  13. SIMVASTATIN [Concomitant]
  14. CALCIUM [Concomitant]
  15. FISH OIL [Concomitant]
  16. ASCORBIC ACID [Concomitant]
  17. ASPIRIN [Concomitant]
  18. METFORMIN HCL [Concomitant]
  19. GLIPIZIDE [Concomitant]
  20. REVLIMID [Suspect]
     Indication: MULTIPLE MYELOMA
     Dosage: 10 MG PO DAILY X 21/28 DAYS BY MOUTH
     Route: 048
     Dates: start: 20100601, end: 20110201
  21. REVLIMID [Suspect]
     Indication: MULTIPLE MYELOMA
     Dosage: 10 MG PO DAILY X 21/28 DAYS BY MOUTH
     Route: 048
     Dates: start: 20120301
  22. DEXAMETHASONE [Concomitant]
  23. LISINOPRIL [Concomitant]

REACTIONS (1)
  - PANCYTOPENIA [None]
